FAERS Safety Report 5322084-9 (Version None)
Quarter: 2007Q2

REPORT INFORMATION
  Report Type: 
  Country: None (occurrence: None)
  Receive Date: 20070222
  Receipt Date: 20060306
  Transmission Date: 20071010
  Serious: Yes (Other)
  Sender: FDA-Public Use
  Company Number: HQWYE165306MAR06

PATIENT
  Age: 43 Year
  Sex: Female

DRUGS (6)
  1. EFFEXOR [Suspect]
  2. DESIPRAMINE HCL [Suspect]
  3. GEODON [Suspect]
  4. LITHIUM CARBONATE [Suspect]
  5. OLANZAPINE [Suspect]
  6. ZOLPIDEM TARTRATE [Suspect]

REACTIONS (1)
  - OVERDOSE [None]
